FAERS Safety Report 16441885 (Version 1)
Quarter: 2019Q2

REPORT INFORMATION
  Report Type: Report from Study
  Country: None (occurrence: US)
  Receive Date: 20190617
  Receipt Date: 20190617
  Transmission Date: 20190711
  Serious: No
  Sender: FDA-Public Use
  Company Number: US-US WORLDMEDS, LLC-USW201809-001351

PATIENT
  Age: 59 Year
  Sex: Female
  Weight: 48.98 kg

DRUGS (4)
  1. CARBIDOPA / LEVODOPA [Concomitant]
     Active Substance: CARBIDOPA\LEVODOPA
     Dates: start: 2009
  2. APOKYN [Suspect]
     Active Substance: APOMORPHINE HYDROCHLORIDE
     Indication: PARKINSON^S DISEASE
     Route: 058
     Dates: start: 20150610
  3. AZILECT [Concomitant]
     Active Substance: RASAGILINE MESYLATE
     Dates: start: 2006
  4. COMTAN [Concomitant]
     Active Substance: ENTACAPONE
     Dates: start: 201803

REACTIONS (2)
  - Fatigue [Recovered/Resolved]
  - Yawning [Recovered/Resolved]

NARRATIVE: CASE EVENT DATE: 20180906
